FAERS Safety Report 15375026 (Version 1)
Quarter: 2018Q3

REPORT INFORMATION
  Report Type: Spontaneous
  Country: FI (occurrence: FI)
  Receive Date: 20180912
  Receipt Date: 20180912
  Transmission Date: 20181010
  Serious: Yes (Hospitalization)
  Sender: FDA-Public Use
  Company Number: FI-BAUSCH-BL-2018-024956

PATIENT
  Age: 10 Year
  Sex: Female

DRUGS (3)
  1. AZAMUN [Interacting]
     Active Substance: AZATHIOPRINE
     Indication: CROHN^S DISEASE
     Route: 048
     Dates: start: 20180104, end: 20180803
  2. HUMIRA [Interacting]
     Active Substance: ADALIMUMAB
     Indication: CROHN^S DISEASE
     Route: 058
     Dates: start: 20160311, end: 20180802
  3. PREDNISOLON [Suspect]
     Active Substance: PREDNISOLONE
     Indication: JOINT SWELLING
     Route: 048
     Dates: start: 20180702, end: 20180803

REACTIONS (5)
  - Intervertebral discitis [Not Recovered/Not Resolved]
  - Nasopharyngitis [Not Recovered/Not Resolved]
  - Streptococcus test positive [Not Recovered/Not Resolved]
  - Drug interaction [Not Recovered/Not Resolved]
  - Pyrexia [Not Recovered/Not Resolved]

NARRATIVE: CASE EVENT DATE: 201807
